FAERS Safety Report 9997526 (Version 1)
Quarter: 2014Q1

REPORT INFORMATION
  Report Type: Spontaneous
  Country: US (occurrence: None)
  Receive Date: 20140304
  Receipt Date: 20140304
  Transmission Date: 20141002
  Serious: Yes (Other)
  Sender: FDA-Public Use
  Company Number: RB-57963-2013

PATIENT
  Sex: Male

DRUGS (2)
  1. BUPRENORPHINE [Suspect]
     Indication: DRUG DEPENDENCE
     Route: 064
     Dates: end: 20130531
  2. NICOTINE [Suspect]
     Indication: NICOTINE DEPENDENCE
     Dosage: 10 CIGARETTES
     Route: 064
     Dates: start: 201208, end: 20130531

REACTIONS (2)
  - Foetal exposure during pregnancy [None]
  - Agitation neonatal [None]
